FAERS Safety Report 4353953-4 (Version None)
Quarter: 2004Q2

REPORT INFORMATION
  Report Type: 
  Country: None (occurrence: None)
  Receive Date: 20040506
  Receipt Date: 20040211
  Transmission Date: 20050107
  Serious: No
  Sender: FDA-Public Use
  Company Number: US-GLAXOSMITHKLINE-A0497819A

PATIENT
  Age: 65 Year

DRUGS (5)
  1. AVANDAMET [Suspect]
     Route: 048
  2. BETOPTIC [Concomitant]
  3. SYNTHROID [Concomitant]
  4. ELIDEL [Concomitant]
  5. ASPIRIN [Concomitant]

REACTIONS (1)
  - ABDOMINAL DISTENSION [None]
